FAERS Safety Report 24880577 (Version 1)
Quarter: 2025Q1

REPORT INFORMATION
  Report Type: Spontaneous
  Country: IT (occurrence: IT)
  Receive Date: 20250123
  Receipt Date: 20250123
  Transmission Date: 20250409
  Serious: Yes (Other)
  Sender: SANDOZ
  Company Number: None

PATIENT
  Age: 44 Year
  Sex: Female

DRUGS (21)
  1. ZOLEDRONIC ACID [Suspect]
     Active Substance: ZOLEDRONIC ACID
     Indication: Metastases to bone
     Dosage: 4 MG, Q3W
     Route: 042
     Dates: end: 2017
  2. ZOLEDRONIC ACID [Suspect]
     Active Substance: ZOLEDRONIC ACID
     Indication: Malignant neoplasm progression
  3. DOCETAXEL [Concomitant]
     Active Substance: DOCETAXEL
     Indication: Metastases to bone
     Dosage: 20 MG/M2 ON DAY 1,8,15
     Route: 065
     Dates: start: 201501, end: 201902
  4. DOCETAXEL [Concomitant]
     Active Substance: DOCETAXEL
     Indication: Breast cancer metastatic
  5. DOCETAXEL [Concomitant]
     Active Substance: DOCETAXEL
     Indication: Hormone receptor positive HER2 negative breast cancer
  6. DOCETAXEL [Concomitant]
     Active Substance: DOCETAXEL
     Indication: Malignant neoplasm progression
  7. EVEROLIMUS [Concomitant]
     Active Substance: EVEROLIMUS
     Indication: Metastases to bone
     Route: 065
     Dates: start: 201501, end: 201902
  8. EVEROLIMUS [Concomitant]
     Active Substance: EVEROLIMUS
     Indication: Breast cancer metastatic
  9. EVEROLIMUS [Concomitant]
     Active Substance: EVEROLIMUS
     Indication: Hormone receptor positive HER2 negative breast cancer
  10. EVEROLIMUS [Concomitant]
     Active Substance: EVEROLIMUS
     Indication: Malignant neoplasm progression
  11. EXEMESTANE [Concomitant]
     Active Substance: EXEMESTANE
     Indication: Metastases to bone
     Route: 065
     Dates: start: 201501, end: 201902
  12. EXEMESTANE [Concomitant]
     Active Substance: EXEMESTANE
     Indication: Hormone receptor positive HER2 negative breast cancer
  13. EXEMESTANE [Concomitant]
     Active Substance: EXEMESTANE
     Indication: Malignant neoplasm progression
  14. EXEMESTANE [Concomitant]
     Active Substance: EXEMESTANE
     Indication: Metastases to bone
  15. GEMCITABINE [Concomitant]
     Active Substance: GEMCITABINE
     Indication: Metastases to bone
     Dosage: 750 MG/M2 ON DAYS 2 AND 16
     Route: 065
     Dates: start: 201501, end: 201902
  16. GEMCITABINE [Concomitant]
     Active Substance: GEMCITABINE
     Indication: Breast cancer metastatic
  17. GEMCITABINE [Concomitant]
     Active Substance: GEMCITABINE
     Indication: Hormone receptor positive HER2 negative breast cancer
  18. GEMCITABINE [Concomitant]
     Active Substance: GEMCITABINE
     Indication: Malignant neoplasm progression
  19. VINORELBINE [Concomitant]
     Active Substance: VINORELBINE TARTRATE
     Indication: Metastases to bone
     Dosage: 15 MG/M2 ON DAY 2,18
     Route: 065
     Dates: start: 201501, end: 201902
  20. VINORELBINE [Concomitant]
     Active Substance: VINORELBINE TARTRATE
     Indication: Breast cancer metastatic
  21. VINORELBINE [Concomitant]
     Active Substance: VINORELBINE TARTRATE
     Indication: Hormone receptor positive HER2 negative breast cancer

REACTIONS (1)
  - Osteonecrosis of jaw [Unknown]

NARRATIVE: CASE EVENT DATE: 20170101
